FAERS Safety Report 17691407 (Version 1)
Quarter: 2020Q2

REPORT INFORMATION
  Report Type: Spontaneous
  Country: US (occurrence: US)
  Receive Date: 20200422
  Receipt Date: 20200422
  Transmission Date: 20200714
  Serious: No
  Sender: FDA-Public Use
  Company Number: US-ALLERGAN-1936555US

PATIENT
  Age: 65 Year
  Sex: Female
  Weight: 68.03 kg

DRUGS (1)
  1. ACTONEL [Suspect]
     Active Substance: RISEDRONATE SODIUM
     Indication: OSTEOPOROSIS
     Dosage: 150 MG, Q MONTH
     Route: 048
     Dates: start: 20190819

REACTIONS (20)
  - Malaise [Recovering/Resolving]
  - Dysphonia [Recovering/Resolving]
  - Fatigue [Recovering/Resolving]
  - Chest discomfort [Recovered/Resolved]
  - Asthenia [Recovering/Resolving]
  - Gait disturbance [Recovering/Resolving]
  - Pain in extremity [Recovered/Resolved]
  - Oropharyngeal pain [Recovering/Resolving]
  - Pain in jaw [Recovered/Resolved]
  - Pelvic pain [Recovering/Resolving]
  - Dyspepsia [Recovering/Resolving]
  - Bone pain [Recovering/Resolving]
  - Dyspnoea [Recovering/Resolving]
  - Musculoskeletal chest pain [Recovered/Resolved]
  - Arthralgia [Recovering/Resolving]
  - Influenza like illness [Recovering/Resolving]
  - Nausea [Recovering/Resolving]
  - Neck pain [Recovering/Resolving]
  - Myalgia [Recovered/Resolved]
  - Musculoskeletal pain [Recovered/Resolved]

NARRATIVE: CASE EVENT DATE: 20190819
